FAERS Safety Report 12539452 (Version 1)
Quarter: 2016Q3

REPORT INFORMATION
  Report Type: Spontaneous
  Country: US (occurrence: None)
  Receive Date: 20160707
  Receipt Date: 20160707
  Transmission Date: 20161109
  Serious: Yes (Other)
  Sender: FDA-Public Use
  Company Number: None

PATIENT
  Age: 50 Year
  Sex: Female
  Weight: 49.9 kg

DRUGS (1)
  1. MOXIFLOXACIN, 400 MG [Suspect]
     Active Substance: MOXIFLOXACIN
     Indication: SINUSITIS
     Route: 048
     Dates: start: 20160627, end: 20160701

REACTIONS (13)
  - Pain in extremity [None]
  - Gait disturbance [None]
  - Arthropathy [None]
  - Tendonitis [None]
  - Groin pain [None]
  - Breast tenderness [None]
  - Pain [None]
  - Fatigue [None]
  - Depressed level of consciousness [None]
  - Breast pain [None]
  - Somnolence [None]
  - Feeling abnormal [None]
  - Asthenia [None]

NARRATIVE: CASE EVENT DATE: 20160629
